FAERS Safety Report 18286117 (Version 3)
Quarter: 2020Q4

REPORT INFORMATION
  Report Type: Spontaneous
  Country: US (occurrence: US)
  Receive Date: 20200919
  Receipt Date: 20201104
  Transmission Date: 20210113
  Serious: No
  Sender: FDA-Public Use
  Company Number: US-UNITED THERAPEUTICS-UNT-2020-013949

PATIENT
  Age: 75 Year
  Sex: Female

DRUGS (4)
  1. ORENITRAM [Suspect]
     Active Substance: TREPROSTINIL
     Dosage: UNK
     Route: 048
     Dates: start: 20200819
  2. ORENITRAM [Suspect]
     Active Substance: TREPROSTINIL
     Dosage: 1.625 MG, TID
     Route: 048
     Dates: start: 2020
  3. ORENITRAM [Suspect]
     Active Substance: TREPROSTINIL
     Indication: PULMONARY ARTERIAL HYPERTENSION
     Dosage: UNK
     Route: 048
     Dates: start: 20200809
  4. ORENITRAM [Suspect]
     Active Substance: TREPROSTINIL
     Dosage: 2.875 MG, TID
     Route: 048
     Dates: end: 20201003

REACTIONS (15)
  - Headache [Recovered/Resolved]
  - Pain [Recovered/Resolved]
  - Therapy cessation [Unknown]
  - Feeling abnormal [Recovering/Resolving]
  - Nausea [Recovered/Resolved]
  - Fatigue [Recovered/Resolved]
  - Product dose omission issue [Unknown]
  - Dizziness [Recovered/Resolved]
  - Sinusitis [Not Recovered/Not Resolved]
  - Diarrhoea [Recovered/Resolved]
  - Vomiting [Recovering/Resolving]
  - Product use issue [Unknown]
  - Arthralgia [Recovering/Resolving]
  - Neck pain [Recovering/Resolving]
  - Abdominal discomfort [Recovering/Resolving]

NARRATIVE: CASE EVENT DATE: 2020
